FAERS Safety Report 16366285 (Version 1)
Quarter: 2019Q3

REPORT INFORMATION
  Report Type: Spontaneous
  Country: US (occurrence: US)
  Receive Date: 20190528
  Receipt Date: 20190528
  Transmission Date: 20191004
  Serious: Yes (Disabling, Other)
  Sender: FDA-Public Use
  Company Number: None

PATIENT
  Age: 38 Year
  Sex: Male
  Weight: 103.5 kg

DRUGS (1)
  1. KETAMINE HYDROCLORIDE, KETMINE HCL [Suspect]
     Active Substance: KETAMINE HYDROCHLORIDE
     Indication: SEDATION
     Route: 030
     Dates: start: 20190514, end: 20190515

REACTIONS (15)
  - Dissociation [None]
  - Fine motor skill dysfunction [None]
  - Decreased appetite [None]
  - Hallucination [None]
  - Dizziness [None]
  - Emotional poverty [None]
  - Headache [None]
  - Hypersensitivity [None]
  - Amnesia [None]
  - Staring [None]
  - Drug interaction [None]
  - Mood swings [None]
  - Vomiting [None]
  - Restlessness [None]
  - Psychotic disorder [None]

NARRATIVE: CASE EVENT DATE: 20190514
